FAERS Safety Report 7397449-4 (Version None)
Quarter: 2011Q2

REPORT INFORMATION
  Report Type: 
  Country: None (occurrence: None)
  Receive Date: 20110406
  Receipt Date: 20110323
  Transmission Date: 20111010
  Serious: Yes (Hospitalization, Other)
  Sender: FDA-Public Use
  Company Number: PHEH2006US11430

PATIENT
  Sex: Male

DRUGS (70)
  1. DIOVAN [Concomitant]
  2. ANDROGEL [Concomitant]
  3. TRAZODONE HYDROCHLORIDE [Concomitant]
  4. METAMUCIL-2 [Concomitant]
  5. CALCIUM WITH VITAMIN D [Concomitant]
  6. DIGOXIN [Concomitant]
  7. VICODIN [Concomitant]
  8. HUMALOG [Concomitant]
  9. MAGNESIUM [Concomitant]
  10. BUPROPION HYDROCHLORIDE [Concomitant]
  11. LASIX [Concomitant]
  12. AVANDIA [Concomitant]
  13. COLACE [Concomitant]
  14. VITAMIN B6 [Concomitant]
  15. MORPHINE SULFATE [Concomitant]
  16. SIMVASTATIN [Concomitant]
  17. IPRATROPIUM BROMIDE W/SALBUTAMOL [Concomitant]
  18. SERZONE [Concomitant]
  19. LIPITOR [Concomitant]
  20. PROCRIT                            /00909301/ [Concomitant]
  21. GABAPENTIN [Concomitant]
  22. AREDIA [Suspect]
     Indication: MULTIPLE MYELOMA
     Dosage: UNK
     Dates: start: 20020408
  23. ZOMETA [Suspect]
     Indication: MULTIPLE MYELOMA
  24. AMPICILLIN [Concomitant]
  25. PROCRIT                            /00909301/ [Concomitant]
  26. THALIDOMIDE [Concomitant]
  27. VITAMIN B-12 [Concomitant]
  28. LYRICA [Concomitant]
  29. AMLODIPINE BESYLATE AND BENAZEPRIL HYDROCHLORIDE [Concomitant]
  30. TEMAZEPAM [Concomitant]
  31. PREVACID [Concomitant]
  32. GLUCOSAMINE SULFATE W/CHONDROITIN [Concomitant]
  33. TRILEPTAL [Concomitant]
     Dosage: 150 MG, BID
     Route: 048
  34. LANOXIN [Concomitant]
  35. RESTORIL [Concomitant]
  36. DILTIAZEM HCL [Concomitant]
  37. DULCOLAX [Concomitant]
  38. ASPIRIN [Concomitant]
  39. PERI-COLACE [Concomitant]
  40. ATIVAN [Concomitant]
  41. FENOFIBRATE [Concomitant]
  42. LEVITRA [Concomitant]
  43. PERCOCET [Concomitant]
  44. LOSARTAN POTASSIUM [Concomitant]
     Dosage: UNK
  45. NEURONTIN [Concomitant]
  46. PRILOSEC [Concomitant]
  47. CHLORHEXIDINE GLUCONATE [Concomitant]
  48. MEDROL [Concomitant]
  49. CLONIDINE [Concomitant]
  50. FISH OIL [Concomitant]
  51. LORAZEPAM [Concomitant]
  52. FUROSEMIDE [Concomitant]
  53. WELLBUTRIN [Concomitant]
  54. COUMADIN [Concomitant]
  55. LIPITOR [Concomitant]
  56. METOPROLOL TARTRATE [Concomitant]
  57. AZOR [Concomitant]
     Dosage: UNK
     Dates: start: 20090801
  58. MEGACE [Concomitant]
  59. PSYLLIUM [Concomitant]
  60. OS-CAL [Concomitant]
  61. CHEMOTHERAPEUTICS NOS [Concomitant]
  62. PREDNISONE [Concomitant]
  63. ACETAMINOPHEN AND HYDROCODONE BITARTRATE [Concomitant]
  64. CLEOCIN [Concomitant]
  65. LOPRESSOR [Concomitant]
  66. BACITRACIN [Concomitant]
  67. AVANDIA [Concomitant]
  68. EPOETIN ALFA [Concomitant]
  69. CALCIUM CARBONATE [Concomitant]
  70. NIASPAN [Concomitant]

REACTIONS (96)
  - OSTEONECROSIS OF JAW [None]
  - ANXIETY [None]
  - WHEEZING [None]
  - SUPRAVENTRICULAR EXTRASYSTOLES [None]
  - TACHYARRHYTHMIA [None]
  - ARTERIOSCLEROSIS [None]
  - ARTHRALGIA [None]
  - HYPOAESTHESIA FACIAL [None]
  - OSTEOARTHRITIS [None]
  - DIZZINESS [None]
  - GASTRITIS [None]
  - GENERAL PHYSICAL HEALTH DETERIORATION [None]
  - HYPOCALCAEMIA [None]
  - DYSPNOEA [None]
  - NEURALGIA [None]
  - ERECTILE DYSFUNCTION [None]
  - INTERNATIONAL NORMALISED RATIO INCREASED [None]
  - FATIGUE [None]
  - ABDOMINAL PAIN UPPER [None]
  - HYPERLIPIDAEMIA [None]
  - BLOOD CHOLESTEROL INCREASED [None]
  - TESTICULAR SWELLING [None]
  - GYNAECOMASTIA [None]
  - LOSS OF CONSCIOUSNESS [None]
  - DISTURBANCE IN ATTENTION [None]
  - SKIN INJURY [None]
  - PAIN [None]
  - DEFORMITY [None]
  - PYREXIA [None]
  - LEUKOCYTOSIS [None]
  - SINUS TACHYCARDIA [None]
  - PERIPHERAL EMBOLISM [None]
  - COLITIS ISCHAEMIC [None]
  - CONSTIPATION [None]
  - PROTHROMBIN TIME PROLONGED [None]
  - GLYCOSYLATED HAEMOGLOBIN INCREASED [None]
  - PLEURAL EFFUSION [None]
  - ALOPECIA [None]
  - BONE DISORDER [None]
  - HYPOAESTHESIA [None]
  - EPIDIDYMITIS [None]
  - PAIN IN JAW [None]
  - TESTICULAR PAIN [None]
  - LEFT VENTRICULAR HYPERTROPHY [None]
  - CARDIAC FAILURE CONGESTIVE [None]
  - NAIL DYSTROPHY [None]
  - SENSORY LOSS [None]
  - LIMB INJURY [None]
  - INFECTION [None]
  - PRESYNCOPE [None]
  - PARAESTHESIA [None]
  - ORCHITIS [None]
  - PULMONARY OEDEMA [None]
  - CORNEAL ABRASION [None]
  - INTERMITTENT CLAUDICATION [None]
  - OSTEOMYELITIS [None]
  - INSOMNIA [None]
  - MUSCLE TWITCHING [None]
  - VENTRICULAR EXTRASYSTOLES [None]
  - UPPER RESPIRATORY TRACT INFECTION [None]
  - PRODUCTIVE COUGH [None]
  - PHLEBITIS [None]
  - ASTHENIA [None]
  - WEIGHT DECREASED [None]
  - ANAEMIA [None]
  - OPEN WOUND [None]
  - PLEURAL FIBROSIS [None]
  - CATARACT [None]
  - GAIT DISTURBANCE [None]
  - HYPOPHAGIA [None]
  - INJURY [None]
  - HYPOTENSION [None]
  - RENAL ISCHAEMIA [None]
  - OEDEMA PERIPHERAL [None]
  - CARDIAC VALVE ABSCESS [None]
  - WEIGHT INCREASED [None]
  - DYSAESTHESIA [None]
  - ONYCHOMYCOSIS [None]
  - SYNCOPE [None]
  - CONJUNCTIVITIS [None]
  - RENAL FAILURE ACUTE [None]
  - EMOTIONAL DISTRESS [None]
  - DECREASED INTEREST [None]
  - LIFE EXPECTANCY SHORTENED [None]
  - PNEUMONIA [None]
  - DIARRHOEA [None]
  - LEFT ATRIAL DILATATION [None]
  - SPINAL OSTEOARTHRITIS [None]
  - BRONCHITIS [None]
  - SOMNOLENCE [None]
  - SINUSITIS [None]
  - HYDROCELE [None]
  - GASTROOESOPHAGEAL REFLUX DISEASE [None]
  - PAIN IN EXTREMITY [None]
  - LIBIDO DECREASED [None]
  - BACK PAIN [None]
